FAERS Safety Report 8091962-2 (Version None)
Quarter: 2012Q1

REPORT INFORMATION
  Report Type: 
  Country: None (occurrence: None)
  Receive Date: 20120129
  Receipt Date: 20111122
  Transmission Date: 20120608
  Serious: No
  Sender: FDA-Public Use
  Company Number: US-ABBOTT-11P-163-0868054-00

PATIENT
  Age: 75 Year
  Sex: Male

DRUGS (14)
  1. FAMOTIDINE [Concomitant]
     Indication: DYSPEPSIA
     Dosage: QDAY
  2. LOMOTIL [Concomitant]
     Indication: DIARRHOEA
     Dosage: 4 TO 6 TABLETS QD
  3. SODIUM BICARBONATE [Concomitant]
     Indication: DYSPEPSIA
     Dosage: BID
  4. VITAMIN B-12 [Concomitant]
     Indication: PROPHYLAXIS
  5. PRO-RENAL [Concomitant]
     Indication: RENAL FAILURE CHRONIC
  6. CLONIDINE [Concomitant]
     Indication: PRODUCT USED FOR UNKNOWN INDICATION
  7. HUMIRA [Suspect]
     Indication: CROHN'S DISEASE
     Dates: start: 20110714
  8. PREDNISONE TAB [Concomitant]
     Indication: OEDEMA
     Dosage: QOD
  9. PREDNISONE TAB [Concomitant]
     Dosage: QOD
  10. NORVASC [Concomitant]
     Indication: HYPERTENSION
     Dosage: 5 MG DAILY
  11. BYSTOLIC [Concomitant]
     Indication: HYPERTENSION
  12. TERAZOSIN HCL [Concomitant]
     Indication: HYPERTENSION
     Dosage: 1 MG DAILY
  13. PROCRIT [Concomitant]
     Indication: HAEMOGLOBIN DECREASED
     Dosage: PRN
  14. QUINIDINE HCL [Concomitant]
     Indication: HYPERTENSION
     Dosage: PATCH

REACTIONS (4)
  - CROHN'S DISEASE [None]
  - BACK PAIN [None]
  - DEFAECATION URGENCY [None]
  - DIARRHOEA [None]
